FAERS Safety Report 6109562-X (Version None)
Quarter: 2009Q1

REPORT INFORMATION
  Report Type: 
  Country: None (occurrence: None)
  Receive Date: 20090306
  Receipt Date: 20090306
  Transmission Date: 20090719
  Serious: Yes (Life-Threatening)
  Sender: FDA-Public Use
  Company Number: None

PATIENT
  Age: 54 Year
  Sex: Female
  Weight: 52.6173 kg

DRUGS (2)
  1. KETOCONAZOLE [Suspect]
     Indication: TINEA VERSICOLOUR
     Dosage: 200 MG ONCE DAILY PO
     Route: 048
  2. KETOCONAZOLE [Concomitant]

REACTIONS (17)
  - BACK PAIN [None]
  - BLOOD URINE PRESENT [None]
  - CHROMATURIA [None]
  - DEPRESSION [None]
  - ECONOMIC PROBLEM [None]
  - FAECES DISCOLOURED [None]
  - FATIGUE [None]
  - FEAR [None]
  - HAEMATOCHEZIA [None]
  - JAUNDICE [None]
  - LIVER DISORDER [None]
  - MALAISE [None]
  - NAUSEA [None]
  - PRURITUS [None]
  - RASH [None]
  - SWELLING [None]
  - VOMITING [None]
